FAERS Safety Report 12699586 (Version 1)
Quarter: 2016Q3

REPORT INFORMATION
  Report Type: Spontaneous
  Country: TW (occurrence: TW)
  Receive Date: 20160830
  Receipt Date: 20160830
  Transmission Date: 20161109
  Serious: Yes (Hospitalization)
  Sender: FDA-Public Use
  Company Number: TW-MERRIMACK PHARMACEUTICALS, INC.-MER-2016-000096

PATIENT

DRUGS (1)
  1. ONIVYDE [Suspect]
     Active Substance: IRINOTECAN HYDROCHLORIDE
     Indication: OVARIAN EPITHELIAL CANCER
     Dosage: UNK
     Dates: start: 20160302

REACTIONS (3)
  - Normochromic normocytic anaemia [Unknown]
  - Disease progression [Unknown]
  - Obstruction [Unknown]
